FAERS Safety Report 5797626-X (Version None)
Quarter: 2008Q3

REPORT INFORMATION
  Report Type: 
  Country: None (occurrence: None)
  Receive Date: 20080702
  Receipt Date: 20080624
  Transmission Date: 20090109
  Serious: Yes (Life-Threatening, Hospitalization)
  Sender: FDA-Public Use
  Company Number: JP-JNJFOC-20080603611

PATIENT
  Sex: Female
  Weight: 56 kg

DRUGS (15)
  1. REMICADE [Suspect]
     Route: 042
  2. REMICADE [Suspect]
     Indication: RHEUMATOID ARTHRITIS
     Route: 042
  3. RHEUMATREX [Suspect]
     Indication: RHEUMATOID ARTHRITIS
     Route: 048
  4. PREDONIN [Suspect]
     Indication: RHEUMATOID ARTHRITIS
     Route: 048
  5. NABOAL SR [Concomitant]
     Indication: RHEUMATOID ARTHRITIS
     Route: 048
  6. SELBEX [Concomitant]
     Route: 048
  7. CYANOCOBALAMIN [Concomitant]
     Route: 048
  8. JUVELAN [Concomitant]
     Route: 048
  9. BONALON [Concomitant]
     Indication: OSTEOPOROSIS
     Route: 048
  10. LIVALO [Concomitant]
     Indication: HYPERLIPIDAEMIA
     Route: 048
  11. MUCODYNE [Concomitant]
     Indication: ASTHMA
     Route: 048
  12. MUCOSOLVAN [Concomitant]
     Indication: ASTHMA
     Route: 048
  13. ALLEGRA [Concomitant]
     Indication: ASTHMA
     Route: 048
  14. HOKUNALIN [Concomitant]
     Indication: ASTHMA
  15. SEREVENT [Concomitant]
     Route: 055

REACTIONS (1)
  - LISTERIA SEPSIS [None]
